FAERS Safety Report 23845053 (Version 1)
Quarter: 2024Q2

REPORT INFORMATION
  Report Type: Spontaneous
  Country: US (occurrence: US)
  Receive Date: 20240511
  Receipt Date: 20240511
  Transmission Date: 20240715
  Serious: No
  Sender: FDA-Public Use
  Company Number: US-CIPLA LTD.-2023US05661

PATIENT

DRUGS (3)
  1. ALBUTEROL [Suspect]
     Active Substance: ALBUTEROL
     Indication: Seasonal allergy
     Dosage: 0.09 MILLIGRAM, PRN
     Dates: start: 2023
  2. ALBUTEROL [Suspect]
     Active Substance: ALBUTEROL
     Indication: Catarrh
     Dosage: 0.09 MILLIGRAM, PRN (90 MCG (3 TO 4 PUFFS), AS NEEDED (PRN))
     Dates: start: 2023
  3. ALBUTEROL [Suspect]
     Active Substance: ALBUTEROL
     Indication: Asthma
     Dosage: 0.09 MILLIGRAM, PRN (90 MCG (3 TO 4 PUFFS), AS NEEDED (PRN))
     Dates: start: 2023, end: 202309

REACTIONS (4)
  - Chest discomfort [Recovering/Resolving]
  - Device mechanical issue [Unknown]
  - Product cleaning inadequate [Unknown]
  - Device delivery system issue [Unknown]

NARRATIVE: CASE EVENT DATE: 20230101
